FAERS Safety Report 19912537 (Version 1)
Quarter: 2021Q4

REPORT INFORMATION
  Report Type: Spontaneous
  Country: FR (occurrence: FR)
  Receive Date: 20211004
  Receipt Date: 20211004
  Transmission Date: 20220303
  Serious: Yes (Hospitalization)
  Sender: FDA-Public Use
  Company Number: FR-EXELIXIS-CABO-21044730

PATIENT
  Age: 85 Year
  Sex: Male

DRUGS (1)
  1. CABOMETYX [Suspect]
     Active Substance: CABOZANTINIB S-MALATE
     Indication: Product used for unknown indication
     Dosage: 20 MG
     Dates: start: 202109

REACTIONS (4)
  - Lower respiratory tract congestion [Unknown]
  - Prolapse [Unknown]
  - Oedema [Unknown]
  - Pleurisy [Unknown]

NARRATIVE: CASE EVENT DATE: 20210901
